FAERS Safety Report 8446033-X (Version None)
Quarter: 2012Q2

REPORT INFORMATION
  Report Type: 
  Country: None (occurrence: None)
  Receive Date: 20120618
  Receipt Date: 20120609
  Transmission Date: 20120825
  Serious: Yes (Hospitalization)
  Sender: FDA-Public Use
  Company Number: CA-PFIZER INC-2012112944

PATIENT
  Age: 68 Year
  Sex: Male
  Weight: 108.9 kg

DRUGS (31)
  1. EFFEXOR XR [Suspect]
     Dosage: 75 MG IN THE MORNING AND 37.5 MG IN THE EVENING
     Dates: start: 20120206, end: 20120229
  2. LANTUS [Concomitant]
     Indication: DIABETES MELLITUS
     Dosage: 6 IU, 2X/DAY AT BREAKFAST AND SUPPER
     Route: 058
     Dates: start: 20010101
  3. SALBUTAMOL [Concomitant]
     Indication: ASTHMA
     Dosage: 200 UG, EVERY 4 HOURS AS NEEDED
     Route: 055
     Dates: start: 19950101
  4. SENNA [Concomitant]
     Indication: CONSTIPATION
     Dosage: 17.2 MG, 1X/DAY AT BEDTIME
     Route: 048
     Dates: start: 20060101
  5. BLINDED THERAPY [Suspect]
     Dosage: 10 MG, 1X/DAY
     Dates: start: 20120418, end: 20120426
  6. VENTOLIN [Concomitant]
     Dosage: 100 UG, AS NEEDED
  7. HUMALOG [Concomitant]
     Indication: DIABETES MELLITUS
     Dosage: 6-8 IU, 3X/DAY WITH MEALS
     Route: 058
     Dates: start: 20010101
  8. EFFEXOR XR [Suspect]
     Dosage: 75 MG, 1X/DAY
     Dates: start: 20120113, end: 20120129
  9. EFFEXOR XR [Suspect]
     Dosage: 75 MG, 2X/DAY
     Dates: start: 20120301, end: 20120426
  10. BLINDED THERAPY [Suspect]
     Dosage: 5 MG, 1X/DAY
     Dates: start: 20120404, end: 20120410
  11. CYCLOBENZAPRINE [Concomitant]
     Indication: PAIN
     Dosage: 10 MG, 1X/DAY
     Dates: start: 19980101
  12. TERAZOSIN [Concomitant]
     Dosage: 10 MG, 1X/DAY
  13. RAMIPRIL [Concomitant]
     Indication: HYPERTENSION
     Dosage: 10 MG, 1X/DAY
     Route: 048
     Dates: start: 19980101, end: 20120427
  14. FERROUS FUMARATE [Concomitant]
     Indication: ANAEMIA
     Dosage: 300 MG, 2X/DAY WITH BREAKFAST AND WITH DINNER
     Route: 048
     Dates: start: 20080101, end: 20120501
  15. EFFEXOR XR [Suspect]
     Dosage: 37.5 MG, 2X/DAY
     Dates: start: 20120130, end: 20120205
  16. BLINDED THERAPY [Suspect]
     Dosage: 7 MG, 1X/DAY
     Dates: start: 20120411, end: 20120417
  17. ATORVASTATIN [Concomitant]
     Indication: HYPERCHOLESTEROLAEMIA
     Dosage: 40 MG, 1X/DAY AT BEDTIME
     Route: 048
     Dates: start: 20050101
  18. CALCIUM CARBONATE [Concomitant]
     Indication: OSTEOPENIA
     Dosage: 1250 MG, 2X/DAY
     Route: 048
     Dates: start: 20050101
  19. DARBEPOETIN ALFA [Concomitant]
     Indication: ANAEMIA
     Dosage: 60 UG, 1X/DAY
     Route: 058
     Dates: start: 20070101
  20. ALFUZOSIN [Concomitant]
     Indication: BENIGN PROSTATIC HYPERPLASIA
     Dosage: 10 MG, 1X/DAY
     Dates: start: 20070101
  21. HUMULIN R [Concomitant]
     Dosage: 20 IU, 2X/DAY
  22. FLUTICASONE [Concomitant]
     Indication: ASTHMA
     Dosage: 50 UG, 1 PUFF TWICE DAILY AS NEEDED
     Route: 055
     Dates: start: 19950101
  23. EFFEXOR XR [Suspect]
     Dosage: 37.5 MG, 1X/DAY
     Dates: start: 20120106, end: 20120112
  24. BLINDED THERAPY [Suspect]
     Dosage: 2 MG, 1X/DAY
     Dates: start: 20120328, end: 20120403
  25. ADVAIR DISKUS 100/50 [Concomitant]
     Indication: ASTHMA
     Dosage: 50 UG, 2X/DAILY AS NEEDED
     Route: 055
     Dates: start: 19980101
  26. DOCUSATE SODIUM [Concomitant]
     Indication: CONSTIPATION
     Dosage: 200 MG, 2X/DAY
     Route: 048
     Dates: start: 20060101
  27. RHINOCORT [Concomitant]
     Dosage: 64 UG, DAILY
  28. ALLOPURINOL [Concomitant]
     Indication: GOUT
     Dosage: 200 MG, DAILY
     Route: 048
     Dates: start: 20050101
  29. FUROSEMIDE [Concomitant]
     Indication: HYPERTENSION
     Dosage: 80 MG, 2X/DAY
     Route: 048
     Dates: start: 20060101
  30. VITAMIN D [Concomitant]
     Indication: OSTEOPENIA
     Dosage: 1000 IU, 2X/DAY
     Route: 048
     Dates: start: 20050101
  31. ACETYLSALICYLIC ACID [Concomitant]
     Indication: CARDIOVASCULAR EVENT PROPHYLAXIS
     Dosage: 81 MG, 1X/DAY
     Route: 048
     Dates: start: 19960101

REACTIONS (1)
  - ACUTE MYOCARDIAL INFARCTION [None]
